FAERS Safety Report 10559497 (Version 1)
Quarter: 2014Q4

REPORT INFORMATION
  Report Type: Spontaneous
  Country: CN (occurrence: None)
  Receive Date: 20141030
  Receipt Date: 20141030
  Transmission Date: 20150529
  Serious: Yes (Hospitalization)
  Sender: FDA-Public Use
  Company Number: CN2014GSK007588

PATIENT
  Age: 33 Year
  Sex: Male

DRUGS (1)
  1. SEROXAT [Suspect]
     Active Substance: PAROXETINE HYDROCHLORIDE
     Indication: DEPRESSION
     Dosage: 29 TABLETS
     Route: 048

REACTIONS (3)
  - Coma [None]
  - Tic [None]
  - Overdose [None]

NARRATIVE: CASE EVENT DATE: 20141013
